FAERS Safety Report 8879608 (Version 2)
Quarter: 2015Q3

REPORT INFORMATION
  Report Type: Spontaneous
  Country: CN (occurrence: CN)
  Receive Date: 20121101
  Receipt Date: 20150817
  Transmission Date: 20151125
  Serious: Yes (Other)
  Sender: FDA-Public Use
  Company Number: CN-JNJFOC-20121015315

PATIENT

DRUGS (4)
  1. CHEMOTHERAPY [Suspect]
     Active Substance: UNSPECIFIED INGREDIENT
     Indication: ACUTE LEUKAEMIA
     Route: 065
  2. SPORANOX [Suspect]
     Active Substance: ITRACONAZOLE\SODIUM CHLORIDE
     Indication: FUNGAL INFECTION
     Dosage: IF THE EFFICACY WAS NOT SATISFACTORY, WOULD BE APPLIED FOR ANOTHER 2 WEEKS
     Route: 042
  3. SPORANOX [Suspect]
     Active Substance: ITRACONAZOLE\SODIUM CHLORIDE
     Indication: FUNGAL INFECTION
     Dosage: FOR THE FIRST TWO DAYS
     Route: 042
  4. ITRACONAZOLE. [Suspect]
     Active Substance: ITRACONAZOLE
     Indication: FUNGAL INFECTION
     Dosage: 2 WEEK COURSE, IF THE EFFICACY WAS NOT SATISFACTORY 1-3 MONTHS AS A WHOLE COURSE OF TREATMENT
     Route: 048

REACTIONS (2)
  - Cardiac failure [Recovered/Resolved]
  - Blood bilirubin increased [Recovered/Resolved]
